FAERS Safety Report 6117186-3 (Version None)
Quarter: 2009Q1

REPORT INFORMATION
  Report Type: 
  Country: None (occurrence: None)
  Receive Date: 20090314
  Receipt Date: 20090109
  Transmission Date: 20090719
  Serious: No
  Sender: FDA-Public Use
  Company Number: US-ABBOTT-09P-163-0496778-00

PATIENT
  Sex: Female

DRUGS (2)
  1. HUMIRA [Suspect]
     Indication: RHEUMATOID ARTHRITIS
     Dates: start: 20080624, end: 20081221
  2. HUMIRA [Suspect]

REACTIONS (5)
  - INCORRECT DOSE ADMINISTERED [None]
  - INJECTION SITE PAIN [None]
  - PAIN [None]
  - SINUSITIS [None]
  - WRONG TECHNIQUE IN DRUG USAGE PROCESS [None]
